FAERS Safety Report 7209835-3 (Version None)
Quarter: 2011Q1

REPORT INFORMATION
  Report Type: 
  Country: None (occurrence: None)
  Receive Date: 20110104
  Receipt Date: 20101222
  Transmission Date: 20110831
  Serious: Yes (Hospitalization)
  Sender: FDA-Public Use
  Company Number: US-CELGENEUS-163-20785-10122769

PATIENT
  Age: 73 Year
  Sex: Male
  Weight: 104.42 kg

DRUGS (2)
  1. THALOMID [Suspect]
     Indication: MULTIPLE MYELOMA
     Route: 048
     Dates: start: 20100813, end: 20101117
  2. DEXAMETHASONE [Suspect]
     Indication: MULTIPLE MYELOMA
     Route: 048
     Dates: start: 20100808, end: 20101117

REACTIONS (2)
  - PNEUMONIA [None]
  - URINARY TRACT INFECTION STAPHYLOCOCCAL [None]
